FAERS Safety Report 5392607-2 (Version None)
Quarter: 2007Q3

REPORT INFORMATION
  Report Type: 
  Country: None (occurrence: None)
  Receive Date: 20070720
  Receipt Date: 20070717
  Transmission Date: 20080115
  Serious: Yes (Other)
  Sender: FDA-Public Use
  Company Number: US-MERCK-0707USA01876

PATIENT
  Age: 25 Year
  Sex: Male

DRUGS (1)
  1. COZAAR [Suspect]
     Route: 048
     Dates: start: 20050101, end: 20050101

REACTIONS (2)
  - CARDIAC FAILURE [None]
  - DYSPNOEA [None]
